FAERS Safety Report 6071784-4 (Version None)
Quarter: 2009Q1

REPORT INFORMATION
  Report Type: 
  Country: None (occurrence: None)
  Receive Date: 20090210
  Receipt Date: 20090127
  Transmission Date: 20090719
  Serious: Yes (Hospitalization)
  Sender: FDA-Public Use
  Company Number: PHHY2009FR03509

PATIENT
  Age: 87 Year
  Sex: Male
  Weight: 73 kg

DRUGS (15)
  1. VOLTAREN [Suspect]
     Dosage: 75 MG, BID
     Route: 048
     Dates: start: 20070101, end: 20081102
  2. INDORAMIN [Suspect]
     Dosage: 25 MG, TID
     Route: 048
     Dates: start: 20080701, end: 20081102
  3. INDORAMIN [Suspect]
     Dosage: 50 MG/DAY
     Route: 048
     Dates: start: 20090115
  4. PROSCAR [Suspect]
     Dosage: 5 MG, QD
     Route: 048
     Dates: start: 19880101, end: 20081030
  5. GUTRON [Suspect]
     Dosage: 2.5 MG, TID
     Route: 048
     Dates: start: 20080301, end: 20081102
  6. SEGLOR [Concomitant]
     Dosage: 10 MG, BID
     Route: 048
     Dates: start: 19880101
  7. XANAX [Concomitant]
     Dosage: 0.25 MG, QD
     Route: 048
     Dates: start: 19880101
  8. BUFLOMEDIL [Concomitant]
     Dosage: 450 MG, TID
     Route: 048
     Dates: start: 20080301
  9. TERCIAN [Concomitant]
     Dosage: 12.5 MG, QD
     Dates: start: 19880101, end: 20081030
  10. OMEPRAZOLE [Concomitant]
     Dosage: 20 MG, QD
  11. CLARADOL CAFFEINE [Concomitant]
     Dosage: 2 DF, PRN
  12. SPIFEN [Concomitant]
     Dosage: 400 MG, PRN
  13. VITAMIN B-12 [Concomitant]
     Dosage: UNK
     Route: 030
  14. FORLAX [Concomitant]
     Dosage: 4000, AS NEEDED
  15. TRIDESONIT [Concomitant]
     Dosage: UNK
     Dates: start: 20070101, end: 20081102

REACTIONS (15)
  - AORTIC CALCIFICATION [None]
  - ARTERIOSCLEROSIS [None]
  - C-REACTIVE PROTEIN INCREASED [None]
  - CEREBRAL HYPOPERFUSION [None]
  - CREATININE RENAL CLEARANCE [None]
  - DYSARTHRIA [None]
  - DYSKINESIA [None]
  - ELECTROCARDIOGRAM ABNORMAL [None]
  - HEMIPARESIS [None]
  - MALAISE [None]
  - MIGRAINE [None]
  - ORTHOSTATIC HYPOTENSION [None]
  - PARALYSIS [None]
  - REVERSIBLE ISCHAEMIC NEUROLOGICAL DEFICIT [None]
  - ULTRASOUND SCAN [None]
